FAERS Safety Report 8973723 (Version 1)
Quarter: 2012Q4

REPORT INFORMATION
  Report Type: 
  Country: US (occurrence: US)
  Receive Date: 20121218
  Receipt Date: 20121218
  Transmission Date: 20130627
  Serious: Yes (Hospitalization)
  Sender: FDA-Public Use
  Company Number: US-INCYTE CORPORATION-2012IN002350

PATIENT
  Age: 74 Year
  Sex: Female
  Weight: 65.77 kg

DRUGS (5)
  1. JAKAFI [Suspect]
     Indication: MYELOFIBROSIS
     Dosage: 20 mg, bid
     Route: 048
     Dates: start: 201209, end: 20121104
  2. JAKAFI [Suspect]
     Dosage: 20 mg, qd
     Route: 048
     Dates: start: 20121113
  3. AMLODIPINE [Concomitant]
     Dosage: 2.5 mg, qd
  4. CALTRATE WITH VITAMIN D [Concomitant]
  5. MVI [Concomitant]
     Dosage: UNK, qd

REACTIONS (1)
  - Pancytopenia [Recovering/Resolving]
